FAERS Safety Report 8116441-5 (Version None)
Quarter: 2012Q1

REPORT INFORMATION
  Report Type: 
  Country: None (occurrence: None)
  Receive Date: 20120206
  Receipt Date: 20120125
  Transmission Date: 20120608
  Serious: Yes (Hospitalization)
  Sender: FDA-Public Use
  Company Number: IT-ACTELION-A-CH2012-60294

PATIENT
  Sex: Male
  Weight: 13 kg

DRUGS (3)
  1. MYOZYME [Concomitant]
  2. D3 [Concomitant]
  3. ZAVESCA [Suspect]
     Indication: GLYCOGEN STORAGE DISEASE TYPE II
     Dosage: UNK
     Route: 048
     Dates: start: 20110713

REACTIONS (8)
  - C-REACTIVE PROTEIN INCREASED [None]
  - COUGH [None]
  - ASPARTATE AMINOTRANSFERASE INCREASED [None]
  - BLOOD LACTATE DEHYDROGENASE INCREASED [None]
  - BLOOD CHLORIDE DECREASED [None]
  - PNEUMONIA [None]
  - PYREXIA [None]
  - ALANINE AMINOTRANSFERASE INCREASED [None]
